FAERS Safety Report 8523799-1 (Version None)
Quarter: 2012Q3

REPORT INFORMATION
  Report Type: 
  Country: None (occurrence: None)
  Receive Date: 20120720
  Receipt Date: 20120629
  Transmission Date: 20120928
  Serious: Yes (Hospitalization, Other)
  Sender: FDA-Public Use
  Company Number: AU-SANOFI-AVENTIS-200520631GDDC

PATIENT
  Age: 77 Year
  Sex: Male

DRUGS (7)
  1. ATENOLOL [Concomitant]
     Dates: start: 20050501
  2. RAMIPRIL [Concomitant]
     Indication: BLOOD PRESSURE INCREASED
     Dates: start: 20030501
  3. SIMVASTATIN [Concomitant]
     Dates: start: 19900101
  4. PLACEBO [Suspect]
     Route: 048
     Dates: start: 20050329
  5. OPTIPEN [Suspect]
     Indication: DIABETES MELLITUS
  6. LANTUS [Suspect]
     Indication: DIABETES MELLITUS
     Dosage: DOSE:46 UNIT(S)
     Route: 058
     Dates: start: 20050329, end: 20051130
  7. ASPIRIN [Concomitant]
     Dates: start: 19840101

REACTIONS (1)
  - GRAND MAL CONVULSION [None]
